FAERS Safety Report 5076122-1 (Version None)
Quarter: 2006Q3

REPORT INFORMATION
  Report Type: 
  Country: None (occurrence: None)
  Receive Date: 20060804
  Receipt Date: 20060725
  Transmission Date: 20061208
  Serious: Yes (Hospitalization)
  Sender: FDA-Public Use
  Company Number: MEDI-0004515

PATIENT
  Age: 4 Month
  Weight: 2.8 kg

DRUGS (5)
  1. SYNAGIS [Suspect]
     Indication: ANTIVIRAL PROPHYLAXIS
     Dosage: 40 MG, 1 IN 30 D, INTRAMUSCULAR ; 27 MG, 1 IN 30 D, INTRAMUSCULAR ; 50 MG, 1 IN 30 D, INTRAMUSCULAR
     Route: 030
     Dates: start: 20051025, end: 20051125
  2. SYNAGIS [Suspect]
     Indication: ANTIVIRAL PROPHYLAXIS
     Dosage: 40 MG, 1 IN 30 D, INTRAMUSCULAR ; 27 MG, 1 IN 30 D, INTRAMUSCULAR ; 50 MG, 1 IN 30 D, INTRAMUSCULAR
     Route: 030
     Dates: start: 20060314, end: 20060314
  3. SYNAGIS [Suspect]
     Indication: ANTIVIRAL PROPHYLAXIS
     Dosage: 40 MG, 1 IN 30 D, INTRAMUSCULAR ; 27 MG, 1 IN 30 D, INTRAMUSCULAR ; 50 MG, 1 IN 30 D, INTRAMUSCULAR
     Route: 030
     Dates: start: 20051025
  4. SYNAGIS [Suspect]
     Indication: ANTIVIRAL PROPHYLAXIS
     Dosage: 40 MG, 1 IN 30 D, INTRAMUSCULAR ; 27 MG, 1 IN 30 D, INTRAMUSCULAR ; 50 MG, 1 IN 30 D, INTRAMUSCULAR
     Route: 030
     Dates: start: 20060106
  5. SYNAGIS [Suspect]
     Indication: ANTIVIRAL PROPHYLAXIS
     Dosage: 40 MG, 1 IN 30 D, INTRAMUSCULAR ; 27 MG, 1 IN 30 D, INTRAMUSCULAR ; 50 MG, 1 IN 30 D, INTRAMUSCULAR
     Route: 030
     Dates: start: 20060207

REACTIONS (2)
  - MALAISE [None]
  - PYELONEPHRITIS [None]
